FAERS Safety Report 6804152-5 (Version None)
Quarter: 2010Q2

REPORT INFORMATION
  Report Type: 
  Country: None (occurrence: None)
  Receive Date: 20100628
  Receipt Date: 20070403
  Transmission Date: 20101027
  Serious: Yes (Other)
  Sender: FDA-Public Use
  Company Number: US-PFIZER INC-2005141883

PATIENT
  Age: 33 Year
  Sex: Female
  Weight: 114.3 kg

DRUGS (3)
  1. GEODON [Suspect]
     Indication: BIPOLAR I DISORDER
     Route: 065
     Dates: start: 20050719, end: 20050725
  2. OLANZAPINE [Suspect]
  3. TRILEPTAL [Concomitant]

REACTIONS (1)
  - ELECTROCARDIOGRAM QT PROLONGED [None]
